FAERS Safety Report 6478051-5 (Version None)
Quarter: 2009Q4

REPORT INFORMATION
  Report Type: 
  Country: None (occurrence: None)
  Receive Date: 20091207
  Receipt Date: 20091127
  Transmission Date: 20100525
  Serious: Yes (Hospitalization)
  Sender: FDA-Public Use
  Company Number: AT-BAYER-200939814GPV

PATIENT
  Age: 51 Year
  Sex: Female
  Weight: 68 kg

DRUGS (12)
  1. ALEMTUZUMAB [Suspect]
     Indication: CHRONIC LYMPHOCYTIC LEUKAEMIA
     Dosage: AS USED: 30 MG/ML  TOTAL DAILY DOSE: 30 MG/ML
     Route: 058
     Dates: start: 20090930, end: 20091113
  2. DEXAMETHASONE TAB [Suspect]
     Indication: CHRONIC LYMPHOCYTIC LEUKAEMIA
     Route: 048
  3. PEGFILGRASTIM [Suspect]
     Indication: PROPHYLAXIS
     Route: 058
  4. PANTOPRAZOLE [Concomitant]
  5. VALTREX [Concomitant]
  6. DIBONDRIN [Concomitant]
  7. DETRUSITOL [Concomitant]
  8. COTRIM [Concomitant]
  9. AZITHROMYCIN [Concomitant]
     Route: 042
  10. CEFUROXIME [Concomitant]
     Route: 042
  11. LACTATED RINGER'S [Concomitant]
  12. AMPHOTERICIN B [Concomitant]
     Indication: OROPHARYNGEAL CANDIDIASIS
     Route: 048

REACTIONS (3)
  - DYSPNOEA [None]
  - OROPHARYNGEAL CANDIDIASIS [None]
  - PHARYNGEAL ULCERATION [None]
